FAERS Safety Report 6031452-1 (Version None)
Quarter: 2008Q4

REPORT INFORMATION
  Report Type: 
  Country: None (occurrence: None)
  Receive Date: 20081230
  Receipt Date: 20080911
  Transmission Date: 20090506
  Serious: Yes (Other)
  Sender: FDA-Public Use
  Company Number: ZYD-AE-08-125

PATIENT
  Sex: Female

DRUGS (13)
  1. WARFARIN SODIUM [Suspect]
     Dosage: 5MG - QD - PO
     Route: 048
     Dates: start: 20070901, end: 20080911
  2. ASPIRIN [Concomitant]
  3. LASIX [Concomitant]
  4. LANOXIN [Concomitant]
  5. ALBUTEROL [Concomitant]
  6. CYMBALTA [Concomitant]
  7. LANTUS [Concomitant]
  8. ISOSORBIDE DINITRATE [Concomitant]
  9. SYNTHROID [Concomitant]
  10. LOPRESSOR [Concomitant]
  11. PROTONIX [Concomitant]
  12. SPIRIVA [Concomitant]
  13. DIOVAN [Concomitant]

REACTIONS (6)
  - ABDOMINAL PAIN [None]
  - ARTHRALGIA [None]
  - DYSPNOEA [None]
  - EYE HAEMORRHAGE [None]
  - PAIN IN EXTREMITY [None]
  - RED BLOOD CELL COUNT DECREASED [None]
